FAERS Safety Report 15481731 (Version 1)
Quarter: 2018Q4

REPORT INFORMATION
  Report Type: Other
  Country: TR (occurrence: TR)
  Receive Date: 20181010
  Receipt Date: 20181010
  Transmission Date: 20190205
  Serious: Yes (Death, Hospitalization, Other)
  Sender: FDA-Public Use
  Company Number: TR-DEXPHARM-20180769

PATIENT
  Age: 70 Year
  Sex: Female

DRUGS (7)
  1. FOLIC ACID. [Concomitant]
     Active Substance: FOLIC ACID
  2. METHOTREXATE. [Suspect]
     Active Substance: METHOTREXATE
  3. PREDNISONE. [Concomitant]
     Active Substance: PREDNISONE
  4. CANDESARTAN. [Concomitant]
     Active Substance: CANDESARTAN
  5. RITUXIMAB. [Concomitant]
     Active Substance: RITUXIMAB
  6. OMEPRAZOLE. [Interacting]
     Active Substance: OMEPRAZOLE
  7. HYDROXYCHLOROQUINE [Concomitant]
     Active Substance: HYDROXYCHLOROQUINE

REACTIONS (2)
  - Toxicity to various agents [Fatal]
  - Drug interaction [Fatal]
